FAERS Safety Report 7957763-8 (Version None)
Quarter: 2011Q4

REPORT INFORMATION
  Report Type: 
  Country: None (occurrence: None)
  Receive Date: 20111205
  Receipt Date: 20111202
  Transmission Date: 20120403
  Serious: Yes (Life-Threatening, Hospitalization, Other)
  Sender: FDA-Public Use
  Company Number: PHFR2010IE05101

PATIENT
  Sex: Female
  Weight: 91 kg

DRUGS (7)
  1. VALPROATE SODIUM [Concomitant]
     Dosage: 400 MG, UNK
     Route: 048
     Dates: start: 20010101, end: 20101201
  2. ESCITALOPRAM [Concomitant]
     Indication: DEPRESSED MOOD
     Dosage: 20 MG, UNK
     Route: 048
     Dates: start: 20080101
  3. OLANZAPINE [Concomitant]
     Indication: PSYCHOTIC DISORDER
     Dosage: 15 MG, UNK
     Route: 048
     Dates: start: 20110101
  4. ARIPIPRAZOLE [Concomitant]
     Indication: PSYCHOTIC DISORDER
     Dosage: 30 MG, UNK
     Route: 048
     Dates: start: 20110101
  5. ALBUTEROL SULFATE AUTOHALER [Concomitant]
     Dosage: UNK
     Dates: start: 20050101
  6. CLOZARIL [Suspect]
     Dosage: 800MG UNK
     Route: 048
     Dates: end: 20101201
  7. CLOZARIL [Suspect]
     Indication: SCHIZOPHRENIA
     Dosage: 650 MG/DAY
     Route: 048
     Dates: start: 20010206, end: 20101201

REACTIONS (3)
  - OESOPHAGEAL NEOPLASM [None]
  - NEUTROPENIA [None]
  - DYSPHAGIA [None]
